FAERS Safety Report 12791553 (Version 1)
Quarter: 2016Q3

REPORT INFORMATION
  Report Type: Report from Study
  Country: MX (occurrence: MX)
  Receive Date: 20160929
  Receipt Date: 20160929
  Transmission Date: 20161109
  Serious: Yes (Death, Hospitalization, Other)
  Sender: FDA-Public Use
  Company Number: PHHY2016MX134119

PATIENT
  Sex: Female

DRUGS (1)
  1. EXFORGE HCT [Suspect]
     Active Substance: AMLODIPINE BESYLATE\HYDROCHLOROTHIAZIDE\VALSARTAN
     Indication: PRODUCT USED FOR UNKNOWN INDICATION
     Dosage: (10 MG)
     Route: 065
     Dates: end: 20160817

REACTIONS (6)
  - Feeling cold [Unknown]
  - Aphasia [Unknown]
  - Skin discolouration [Unknown]
  - Death [Fatal]
  - Diarrhoea [Unknown]
  - Joint stiffness [Unknown]
